FAERS Safety Report 8202660-6 (Version None)
Quarter: 2012Q1

REPORT INFORMATION
  Report Type: 
  Country: None (occurrence: None)
  Receive Date: 20120312
  Receipt Date: 20120305
  Transmission Date: 20120608
  Serious: Yes (Other)
  Sender: FDA-Public Use
  Company Number: PHHY2012JP019719

PATIENT
  Age: 86 Year
  Sex: Female

DRUGS (5)
  1. RIFAMPICIN [Suspect]
     Indication: INFECTION
     Route: 048
  2. MINOCYCLINE HYDROCHLORIDE [Concomitant]
     Indication: INFECTION
     Route: 048
  3. SULFAMETHOXAZOLE AND TRIMETHOPRIM [Concomitant]
     Indication: INFECTION
     Route: 048
  4. AMIKACIN SULFATE [Concomitant]
     Indication: INFECTION
  5. VANCOMYCIN HYDROCHLORIDE [Concomitant]
     Indication: INFECTION
     Route: 048

REACTIONS (5)
  - HYPONATRAEMIA [None]
  - ALTERED STATE OF CONSCIOUSNESS [None]
  - DIARRHOEA [None]
  - ADRENAL INSUFFICIENCY [None]
  - VOMITING [None]
